FAERS Safety Report 21990785 (Version 1)
Quarter: 2023Q1

REPORT INFORMATION
  Report Type: Spontaneous
  Country: US (occurrence: US)
  Receive Date: 20230214
  Receipt Date: 20230214
  Transmission Date: 20230418
  Serious: No
  Sender: FDA-Public Use
  Company Number: US-ANIPHARMA-2022-US-029711

PATIENT
  Age: 74 Year
  Sex: Female

DRUGS (17)
  1. CORTICOTROPIN [Suspect]
     Active Substance: CORTICOTROPIN
     Indication: Punctate keratitis
     Dosage: INJECT 80 UNITS (1ML) SUBCUTANEOUSLY TWICE WEEKLY
     Route: 058
  2. FIBER LAX [Concomitant]
     Active Substance: CALCIUM POLYCARBOPHIL
     Route: 065
  3. PREPARATION H NOS [Concomitant]
     Active Substance: COCOA BUTTER\PETROLATUM\PHENYLEPHRINE HYDROCHLORIDE\PHENYLEPHRINE HYDROCHLORIDE OR MINERAL OIL
     Route: 065
  4. VITAMIN C [Concomitant]
     Active Substance: ASCORBIC ACID
     Route: 065
  5. D2000 ULTRA STRENGTH [Concomitant]
     Route: 065
  6. MULTIVITAMIN ADULTS 50+ [Concomitant]
     Route: 065
  7. CO-Q 10 OMEGA-3 FISH OIL [Concomitant]
     Route: 065
  8. FISH OIL [Concomitant]
     Active Substance: FISH OIL
     Route: 065
  9. LOSARTAN POTASSIUM [Concomitant]
     Active Substance: LOSARTAN POTASSIUM
     Route: 065
  10. EYE DROPS AR [Concomitant]
     Route: 065
  11. ATENOLOL [Concomitant]
     Active Substance: ATENOLOL
     Route: 065
  12. ATORVASTATIN CALCIUM [Concomitant]
     Active Substance: ATORVASTATIN CALCIUM
     Route: 065
  13. VITAMIN A [Concomitant]
     Active Substance: VITAMIN A
     Route: 065
  14. EYE WASH [Concomitant]
     Route: 065
  15. SOOTHE XP [Concomitant]
     Active Substance: LIGHT MINERAL OIL\MINERAL OIL
     Route: 065
  16. SERTRALINE HYDROCHLORIDE [Concomitant]
     Active Substance: SERTRALINE HYDROCHLORIDE
     Route: 065
  17. FAMOTIDINE [Concomitant]
     Active Substance: FAMOTIDINE
     Route: 065

REACTIONS (2)
  - Headache [Unknown]
  - Injection site bruising [Recovering/Resolving]
